FAERS Safety Report 6988184-2 (Version None)
Quarter: 2010Q3

REPORT INFORMATION
  Report Type: 
  Country: None (occurrence: None)
  Receive Date: 20100916
  Receipt Date: 20100806
  Transmission Date: 20110219
  Serious: Yes (Life-Threatening, Other)
  Sender: FDA-Public Use
  Company Number: US-BAXTER-2010BH021065

PATIENT
  Sex: Female

DRUGS (8)
  1. HEPARIN SODIUM INJECTION [Suspect]
     Indication: CATHETERISATION CARDIAC
     Route: 065
     Dates: start: 20080708, end: 20080718
  2. HEPARIN SODIUM INJECTION [Suspect]
     Indication: VASCULAR GRAFT
     Route: 065
     Dates: start: 20080708, end: 20080718
  3. HEPARIN SODIUM INJECTION [Suspect]
     Route: 065
     Dates: start: 20080701
  4. HEPARIN SODIUM INJECTION [Suspect]
     Route: 065
     Dates: start: 20080701
  5. HEPARIN SODIUM 1,000 UNITS AND SODIUM CHLORIDE 0.9% [Suspect]
     Indication: CATHETERISATION CARDIAC
     Route: 065
     Dates: start: 20080708, end: 20080718
  6. HEPARIN SODIUM 1,000 UNITS AND SODIUM CHLORIDE 0.9% [Suspect]
     Indication: VASCULAR GRAFT
     Route: 065
     Dates: start: 20080708, end: 20080718
  7. HEPARIN SODIUM 5,000 UNITS IN DEXTROSE 5% [Suspect]
     Indication: CATHETERISATION CARDIAC
     Route: 065
     Dates: start: 20080708, end: 20080718
  8. HEPARIN SODIUM 5,000 UNITS IN DEXTROSE 5% [Suspect]
     Indication: VASCULAR GRAFT
     Route: 065
     Dates: start: 20080708, end: 20080718

REACTIONS (11)
  - CEREBROVASCULAR ACCIDENT [None]
  - COGNITIVE DISORDER [None]
  - DECUBITUS ULCER [None]
  - IMPAIRED GASTRIC EMPTYING [None]
  - INFECTION [None]
  - PARALYSIS [None]
  - PLATELET COUNT DECREASED [None]
  - RENAL FAILURE [None]
  - RESPIRATORY FAILURE [None]
  - RESPIRATORY PARALYSIS [None]
  - VOCAL CORD PARALYSIS [None]
